FAERS Safety Report 20952868 (Version 2)
Quarter: 2022Q2

REPORT INFORMATION
  Report Type: Spontaneous
  Country: US (occurrence: US)
  Receive Date: 20220613
  Receipt Date: 20220616
  Transmission Date: 20220721
  Serious: Yes (Other)
  Sender: FDA-Public Use
  Company Number: US-ORGANON-O2206USA001045

PATIENT
  Age: 16 Year
  Sex: Female
  Weight: 45.351 kg

DRUGS (1)
  1. NEXPLANON [Suspect]
     Active Substance: ETONOGESTREL
     Indication: Contraception
     Dosage: 1 IMPLANT, LEFT ARM, NON-DOMINANT ARM
     Route: 059
     Dates: start: 20211101

REACTIONS (6)
  - Device dislocation [Not Recovered/Not Resolved]
  - Fall [Recovered/Resolved]
  - Lip injury [Recovered/Resolved]
  - Contusion [Recovered/Resolved]
  - Implant site pain [Unknown]
  - Implant site scar [Unknown]

NARRATIVE: CASE EVENT DATE: 20220608
